FAERS Safety Report 4511564-1 (Version None)
Quarter: 2004Q4

REPORT INFORMATION
  Report Type: 
  Country: None (occurrence: None)
  Receive Date: 20041129
  Receipt Date: 20040928
  Transmission Date: 20050328
  Serious: No
  Sender: FDA-Public Use
  Company Number: US-BRISTOL-MYERS SQUIBB COMPANY-12716692

PATIENT
  Age: 20 Year
  Sex: Male
  Weight: 89 kg

DRUGS (3)
  1. ABILIFY [Suspect]
     Indication: BIPOLAR DISORDER
     Route: 048
     Dates: start: 20040924
  2. DEPAKOTE [Interacting]
  3. ZYPREXA [Interacting]

REACTIONS (2)
  - FATIGUE [None]
  - SOMNOLENCE [None]
